FAERS Safety Report 8030517-2 (Version None)
Quarter: 2011Q4

REPORT INFORMATION
  Report Type: 
  Country: None (occurrence: None)
  Receive Date: 20111130
  Receipt Date: 20110906
  Transmission Date: 20120403
  Serious: Yes (Hospitalization)
  Sender: FDA-Public Use
  Company Number: US200907007166

PATIENT
  Age: 64 Year
  Sex: Female

DRUGS (11)
  1. EXENATIDE 10MCG PEN, DISPOSABLE DEVICE (EXENATIDE PEN (10MCG)) PEN,DIS [Concomitant]
  2. METOPROLOL TARTRATE [Concomitant]
  3. SIMVASTATIN [Concomitant]
  4. ZOLPIDEM [Concomitant]
  5. TYLENOL /00020001/ (PARACETAMOL) [Concomitant]
  6. COUMADIN [Concomitant]
  7. LISINOPRIL [Concomitant]
  8. METFORMIN HCL [Concomitant]
  9. BYETTA [Suspect]
     Dosage: 10 U, 2/D, SUBCUTANEOUS
     Route: 058
     Dates: end: 20080812
  10. NEXIUM [Concomitant]
  11. NITROGLYCERIN [Concomitant]

REACTIONS (4)
  - THYROIDECTOMY [None]
  - HYPOTHYROIDISM [None]
  - CHOLELITHIASIS [None]
  - PANCREATITIS ACUTE [None]
